FAERS Safety Report 9835450 (Version 1)
Quarter: 2014Q1

REPORT INFORMATION
  Report Type: Spontaneous
  Country: US (occurrence: US)
  Receive Date: 20140122
  Receipt Date: 20140122
  Transmission Date: 20141002
  Serious: No
  Sender: FDA-Public Use
  Company Number: US-BRISTOL-MYERS SQUIBB COMPANY-19620525

PATIENT
  Age: 64 Year
  Sex: Male

DRUGS (1)
  1. ELIQUIS [Suspect]
     Dosage: 4 PILLS

REACTIONS (3)
  - Haematochezia [Unknown]
  - Blood urine present [Unknown]
  - Abdominal pain [Unknown]
